FAERS Safety Report 22001667 (Version 2)
Quarter: 2023Q1

REPORT INFORMATION
  Report Type: Report from Study
  Country: FR (occurrence: None)
  Receive Date: 20230216
  Receipt Date: 20230227
  Transmission Date: 20230418
  Serious: Yes (Hospitalization)
  Sender: FDA-Public Use
  Company Number: FR-ROCHE-3285546

PATIENT
  Age: 65 Year
  Sex: Male
  Weight: 70 kg

DRUGS (4)
  1. ATEZOLIZUMAB [Suspect]
     Active Substance: ATEZOLIZUMAB
     Indication: Bladder cancer
     Dosage: ON 31/JAN/2023, LAST DOSE ADMINISTERED WAS 200 MG.
     Route: 041
     Dates: start: 20220323
  2. BCG VACCINE [Suspect]
     Active Substance: BCG VACCINE
     Indication: Bladder cancer
     Dosage: ON 15/DEC/2022, HE RECEIVED MOST RECENT DOSE OF 600 ML OF BCG.
     Route: 043
     Dates: start: 20220323
  3. METFORMIN [Concomitant]
     Active Substance: METFORMIN HYDROCHLORIDE
     Indication: Diabetes mellitus
     Route: 048
  4. CANDESARTAN [Concomitant]
     Active Substance: CANDESARTAN
     Route: 048

REACTIONS (2)
  - Urethral meatus stenosis [Recovered/Resolved]
  - Bladder stenosis [Recovered/Resolved]

NARRATIVE: CASE EVENT DATE: 20230118
